FAERS Safety Report 9514285 (Version 2)
Quarter: 2013Q4

REPORT INFORMATION
  Report Type: Spontaneous
  Country: FR (occurrence: FR)
  Receive Date: 20130910
  Receipt Date: 20131004
  Transmission Date: 20140711
  Serious: Yes (Other)
  Sender: FDA-Public Use
  Company Number: FR-SANOFI-AVENTIS-2013SA088128

PATIENT
  Age: 92 Year
  Sex: Male

DRUGS (9)
  1. LASILIX [Suspect]
     Indication: PRODUCT USED FOR UNKNOWN INDICATION
     Route: 048
     Dates: start: 20130619
  2. ALDACTONE [Suspect]
     Indication: PRODUCT USED FOR UNKNOWN INDICATION
     Route: 048
     Dates: start: 20130619
  3. HEMIGOXINE NATIVELLE [Suspect]
     Indication: PRODUCT USED FOR UNKNOWN INDICATION
     Route: 048
     Dates: start: 20130619
  4. SERESTA [Concomitant]
     Dosage: STRENGTH: 10 MG
     Route: 048
  5. INEXIUM [Concomitant]
     Dosage: STRENGTH: 20 MG
     Route: 048
  6. PRADAXA [Concomitant]
     Dosage: STRENGTH: 110 MG
     Route: 048
     Dates: end: 20130625
  7. FORLAX [Concomitant]
     Dosage: STRENGTH: 20G
     Route: 048
     Dates: start: 20130531
  8. DAFALGAN [Concomitant]
     Route: 048
  9. DIFFU K [Concomitant]
     Route: 048
     Dates: start: 20130617

REACTIONS (1)
  - Renal failure acute [Unknown]
